FAERS Safety Report 5743818-5 (Version None)
Quarter: 2008Q2

REPORT INFORMATION
  Report Type: 
  Country: None (occurrence: None)
  Receive Date: 20080516
  Receipt Date: 20080506
  Transmission Date: 20081010
  Serious: Yes (Life-Threatening, Hospitalization)
  Sender: FDA-Public Use
  Company Number: ADE2008-0175

PATIENT
  Age: 47 Year
  Sex: Male

DRUGS (11)
  1. ATENOLOL [Suspect]
     Dosage: ORAL
     Route: 048
  2. LINEZOLID [Suspect]
     Indication: STAPHYLOCOCCAL INFECTION
     Dosage: 600 MG-TWICE DAILY-IV
     Route: 042
     Dates: start: 20041017, end: 20041020
  3. DOXAZOSIN MESYLATE [Suspect]
     Dosage: ORAL
     Route: 048
  4. FENTANYL-100 [Suspect]
     Dosage: IV
     Route: 042
  5. HALOPERIDOL [Suspect]
  6. OMEPRAZOLE [Suspect]
     Dosage: ORAL
     Route: 048
  7. PANTOPRAZOLE [Suspect]
  8. PROCYCLIDINE HYDROCHLORIDE 2MG TAB [Suspect]
     Dosage: ORAL
     Route: 048
  9. RIFAMPICIN [Suspect]
     Dosage: IV
     Route: 042
  10. ZOPICLONE [Suspect]
  11. AMISULPRIDE [Suspect]
     Dosage: ORAL
     Route: 048

REACTIONS (2)
  - BLOOD PRESSURE SYSTOLIC INCREASED [None]
  - DRUG INTERACTION [None]
